FAERS Safety Report 18337070 (Version 1)
Quarter: 2020Q4

REPORT INFORMATION
  Report Type: Spontaneous
  Country: US (occurrence: US)
  Receive Date: 20201002
  Receipt Date: 20201002
  Transmission Date: 20210113
  Serious: No
  Sender: FDA-Public Use
  Company Number: US-MELINTA THERAPEUTICS, INC-US-MLNT-19-00222

PATIENT
  Age: 41 Year
  Sex: Female
  Weight: 66.06 kg

DRUGS (2)
  1. ORBACTIV [Suspect]
     Active Substance: ORITAVANCIN
     Indication: POST PROCEDURAL INFECTION
     Dosage: NOT PROVIDED.
     Route: 041
     Dates: start: 20191212, end: 20191212
  2. ORBACTIV [Suspect]
     Active Substance: ORITAVANCIN
     Indication: KNEE ARTHROPLASTY
     Route: 041

REACTIONS (2)
  - Off label use [Recovered/Resolved]
  - Vascular access site rupture [Recovered/Resolved]

NARRATIVE: CASE EVENT DATE: 20191212
